FAERS Safety Report 5910499-7 (Version None)
Quarter: 2008Q4

REPORT INFORMATION
  Report Type: 
  Country: None (occurrence: None)
  Receive Date: 20081007
  Receipt Date: 20080407
  Transmission Date: 20090506
  Serious: Yes (Other)
  Sender: FDA-Public Use
  Company Number: US-ASTRAZENECA-2008UW02602

PATIENT
  Age: 64 Year

DRUGS (1)
  1. ARIMIDEX [Suspect]
     Dates: start: 20060101

REACTIONS (1)
  - PULMONARY EMBOLISM [None]
